FAERS Safety Report 10907156 (Version 2)
Quarter: 2015Q2

REPORT INFORMATION
  Report Type: Spontaneous
  Country: US (occurrence: US)
  Receive Date: 20150312
  Receipt Date: 20150527
  Transmission Date: 20150821
  Serious: Yes (Death, Other)
  Sender: FDA-Public Use
  Company Number: US-ASTRAZENECA-2015SE22374

PATIENT
  Age: 21837 Day
  Sex: Female

DRUGS (28)
  1. PAXIL CR [Concomitant]
     Active Substance: PAROXETINE HYDROCHLORIDE
     Dates: start: 20030725
  2. BAYCOL [Concomitant]
     Active Substance: CERIVASTATIN SODIUM
     Dates: start: 20010608
  3. LIPITOR [Concomitant]
     Active Substance: ATORVASTATIN CALCIUM
     Route: 048
     Dates: start: 20120217
  4. GLUCOPHAGE [Concomitant]
     Active Substance: METFORMIN HYDROCHLORIDE
     Dates: start: 20020703
  5. PROVIGIL [Concomitant]
     Active Substance: MODAFINIL
     Dates: start: 20021115
  6. NAPROXEN. [Concomitant]
     Active Substance: NAPROXEN
     Dates: start: 20030409
  7. STRATTERA [Concomitant]
     Active Substance: ATOMOXETINE HYDROCHLORIDE
     Dates: start: 20080220
  8. GEMFIBROZIL. [Concomitant]
     Active Substance: GEMFIBROZIL
     Dates: start: 20080414
  9. ACTOS [Concomitant]
     Active Substance: PIOGLITAZONE HYDROCHLORIDE
     Dates: start: 20080623
  10. JANUVIA [Suspect]
     Active Substance: SITAGLIPTIN PHOSPHATE
     Route: 048
     Dates: start: 20110323
  11. JANUVIA [Suspect]
     Active Substance: SITAGLIPTIN PHOSPHATE
     Route: 048
     Dates: start: 20120830
  12. GLIPIZIDE. [Concomitant]
     Active Substance: GLIPIZIDE
     Dates: start: 20020722
  13. CYCLOBENZAPRINE [Concomitant]
     Active Substance: CYCLOBENZAPRINE
     Dates: start: 20030409
  14. AVALOX [Concomitant]
     Active Substance: MOXIFLOXACIN HYDROCHLORIDE
     Dates: start: 20020329
  15. AVANDIA [Concomitant]
     Active Substance: ROSIGLITAZONE MALEATE
     Dates: start: 20020626
  16. OXYCODONE [Concomitant]
     Active Substance: OXYCODONE
     Dosage: 5 - 325 MG
     Dates: start: 20080523
  17. BYETTA [Suspect]
     Active Substance: EXENATIDE
     Route: 065
     Dates: start: 20070509, end: 20090924
  18. BYETTA [Suspect]
     Active Substance: EXENATIDE
     Dosage: 10 MCG / 0.04 ML
     Route: 065
     Dates: start: 20070509
  19. BYETTA [Suspect]
     Active Substance: EXENATIDE
     Dosage: 10 MCG / 0.04 ML BID
     Route: 058
     Dates: start: 20100224
  20. CYMBALTA [Suspect]
     Active Substance: DULOXETINE HYDROCHLORIDE
     Route: 048
     Dates: start: 20120727
  21. CLINDAMYCIN HCL [Concomitant]
     Active Substance: CLINDAMYCIN HYDROCHLORIDE
     Dates: start: 20020311
  22. TRIAMCINOLONE [Concomitant]
     Active Substance: TRIAMCINOLONE
     Dates: start: 20010606
  23. JANUVIA [Suspect]
     Active Substance: SITAGLIPTIN PHOSPHATE
     Route: 065
     Dates: start: 20110404, end: 20121003
  24. ZESTRIL [Concomitant]
     Active Substance: LISINOPRIL
     Dates: start: 20020528
  25. LESCOL XL [Concomitant]
     Active Substance: FLUVASTATIN SODIUM
     Dates: start: 20020903
  26. METOPROLOL SUCCINATE. [Concomitant]
     Active Substance: METOPROLOL SUCCINATE
     Dates: start: 20080404
  27. BONIVA [Concomitant]
     Active Substance: IBANDRONATE SODIUM
     Dates: start: 20080407
  28. LIPITOR [Concomitant]
     Active Substance: ATORVASTATIN CALCIUM
     Dates: start: 20080609

REACTIONS (4)
  - Pancreatic carcinoma metastatic [Fatal]
  - Metastases to peritoneum [Unknown]
  - Metastases to lung [Unknown]
  - Pancreatic mass [Unknown]

NARRATIVE: CASE EVENT DATE: 20120707
